FAERS Safety Report 26069811 (Version 1)
Quarter: 2025Q4

REPORT INFORMATION
  Report Type: Spontaneous
  Country: US (occurrence: US)
  Receive Date: 20251120
  Receipt Date: 20251120
  Transmission Date: 20260118
  Serious: No
  Sender: CATALYST PHARMA
  Company Number: US-CATALYST PHARMACEUTICALS-US-CATA-25-01330

PATIENT
  Sex: Male
  Weight: 32.653 kg

DRUGS (15)
  1. AGAMREE [Suspect]
     Active Substance: VAMOROLONE
     Indication: Duchenne muscular dystrophy
     Dosage: 3.5 ML ONCE A DAY
     Route: 048
     Dates: start: 20240318
  2. AGAMREE [Suspect]
     Active Substance: VAMOROLONE
     Dosage: 3 ML ONCE A DAY
     Route: 048
     Dates: start: 202503
  3. CHILDRENS MOTRIN [Concomitant]
     Active Substance: IBUPROFEN
     Indication: Urinary tract infection
     Dosage: 7.5 ML AS NEEDED
     Route: 065
  4. CHILDRENS MOTRIN [Concomitant]
     Active Substance: IBUPROFEN
     Indication: Pain
  5. COENZYME Q10 [Concomitant]
     Active Substance: DIETARY SUPPLEMENT\UBIDECARENONE
     Indication: Cardiovascular event prophylaxis
     Dosage: 100 MG TABLET ONCE A DAY
     Route: 065
  6. DIMETAPP [Concomitant]
     Active Substance: BROMPHENIRAMINE\PSEUDOEPHEDRINE
     Indication: Urinary tract infection
     Dosage: 10 ML AS NEEDED
     Route: 065
  7. ALLERGY RELIEF CHILDREN^S [Concomitant]
     Indication: Hypersensitivity
     Dosage: 10 ML AS NEEDED
     Route: 048
  8. VITAMIN D3 [Concomitant]
     Active Substance: CHOLECALCIFEROL
     Indication: Bone disorder
     Dosage: 10 MCG GUMMIES ONCE A DAY
     Route: 065
  9. VITAMIN D3 [Concomitant]
     Active Substance: CHOLECALCIFEROL
     Indication: Prophylaxis
  10. MULTIVITAMIN GUMMIES [Concomitant]
     Indication: Hypovitaminosis
     Dosage: FOUR GUMMIES ONCE A DAY
     Route: 065
  11. VITAMIN B6 [Concomitant]
     Active Substance: PYRIDOXINE HYDROCHLORIDE
     Indication: Hypovitaminosis
     Dosage: 20 MG ONCE A DAY
     Route: 065
  12. TYLENOL CHILDRENS PLUS COLD + COUGH [Concomitant]
     Indication: Pyrexia
     Dosage: 7.5 ML AS NEEDED
     Route: 065
  13. TYLENOL CHILDRENS PLUS COLD + COUGH [Concomitant]
     Indication: Urinary tract infection
  14. VITAMIN C [Concomitant]
     Active Substance: ASCORBIC ACID
     Indication: Urinary tract infection
     Dosage: 2000 MG ONCE A DAY
     Route: 065
  15. ZARBEE^S [Concomitant]
     Indication: Insomnia
     Dosage: 2 MG TABLET
     Route: 065

REACTIONS (4)
  - Ligament sprain [Not Recovered/Not Resolved]
  - Gait disturbance [Not Recovered/Not Resolved]
  - Toe walking [Not Recovered/Not Resolved]
  - Weight increased [Not Recovered/Not Resolved]

NARRATIVE: CASE EVENT DATE: 20250101
